FAERS Safety Report 11165896 (Version 1)
Quarter: 2015Q2

REPORT INFORMATION
  Report Type: Report from Study
  Country: US (occurrence: US)
  Receive Date: 20150604
  Receipt Date: 20150604
  Transmission Date: 20150821
  Serious: Yes (Hospitalization, Other)
  Sender: FDA-Public Use
  Company Number: US-GILEAD-2015-0156111

PATIENT
  Age: 48 Year
  Sex: Male

DRUGS (21)
  1. QUETIAPINE [Concomitant]
     Active Substance: QUETIAPINE
  2. PREDNISONE. [Concomitant]
     Active Substance: PREDNISONE
  3. TRUVADA [Suspect]
     Active Substance: EMTRICITABINE\TENOFOVIR DISOPROXIL FUMARATE
     Indication: PRODUCT USED FOR UNKNOWN INDICATION
     Dosage: UNK
     Route: 065
  4. OXYCODONE [Concomitant]
     Active Substance: OXYCODONE
  5. POLYETHYLENE GLYCOL [Concomitant]
     Active Substance: POLYETHYLENE GLYCOLS
  6. FUROSEMIDE. [Concomitant]
     Active Substance: FUROSEMIDE
  7. FLUCONAZOLE. [Concomitant]
     Active Substance: FLUCONAZOLE
  8. SPIRONOLACTONE. [Concomitant]
     Active Substance: SPIRONOLACTONE
  9. CALCIUM + D3                       /00944201/ [Concomitant]
     Active Substance: CALCIUM\CHOLECALCIFEROL
  10. TESTOSTERONE. [Concomitant]
     Active Substance: TESTOSTERONE
  11. PROMETHAZINE [Concomitant]
     Active Substance: PROMETHAZINE\PROMETHAZINE HYDROCHLORIDE
  12. OMEPRAZOLE. [Concomitant]
     Active Substance: OMEPRAZOLE
  13. INTELENCE [Concomitant]
     Active Substance: ETRAVIRINE
  14. BUSPIRONE [Concomitant]
     Active Substance: BUSPIRONE HYDROCHLORIDE
  15. LANTUS [Concomitant]
     Active Substance: INSULIN GLARGINE
  16. ALBUTEROL SULFATE. [Concomitant]
     Active Substance: ALBUTEROL SULFATE
  17. AMBRISENTAN [Suspect]
     Active Substance: AMBRISENTAN
     Indication: PULMONARY ARTERIAL HYPERTENSION
     Dosage: 10 MG, QD
     Route: 065
     Dates: start: 20150212
  18. ZOLPIDEM [Concomitant]
     Active Substance: ZOLPIDEM\ZOLPIDEM TARTRATE
  19. CLINDAMYCIN [Concomitant]
     Active Substance: CLINDAMYCIN\CLINDAMYCIN PHOSPHATE
  20. ACYCLOVIR                          /00587301/ [Concomitant]
     Active Substance: ACYCLOVIR
  21. ADVAIR HFA [Concomitant]
     Active Substance: FLUTICASONE PROPIONATE\SALMETEROL XINAFOATE

REACTIONS (6)
  - Headache [Unknown]
  - Shoulder arthroplasty [Recovered/Resolved]
  - Drug ineffective [Unknown]
  - Upper-airway cough syndrome [Unknown]
  - Dyspnoea [Unknown]
  - Dyspnoea exertional [Unknown]
